FAERS Safety Report 9020899 (Version 1)
Quarter: 2013Q1

REPORT INFORMATION
  Report Type: Report from Study
  Country: US (occurrence: US)
  Receive Date: 20130119
  Receipt Date: 20130119
  Transmission Date: 20140127
  Serious: Yes (Other)
  Sender: FDA-Public Use
  Company Number: US-US-EMD SERONO, INC.-7187330

PATIENT
  Sex: Female
  Weight: 108 kg

DRUGS (2)
  1. REBIF [Suspect]
     Indication: MULTIPLE SCLEROSIS
     Route: 058
     Dates: start: 20081020, end: 201206
  2. MERCAPTOPURINE [Concomitant]
     Indication: COLITIS

REACTIONS (2)
  - Autoimmune thyroiditis [Recovering/Resolving]
  - Parathyroid disorder [Recovered/Resolved]
